FAERS Safety Report 11415922 (Version 3)
Quarter: 2015Q3

REPORT INFORMATION
  Report Type: Spontaneous
  Country: GR (occurrence: GR)
  Receive Date: 20150825
  Receipt Date: 20150922
  Transmission Date: 20151125
  Serious: Yes (Hospitalization)
  Sender: FDA-Public Use
  Company Number: GR-PFIZER INC-2015275539

PATIENT
  Age: 13 Year
  Sex: Male

DRUGS (2)
  1. T4 [Concomitant]
     Active Substance: LEVOTHYROXINE
     Indication: HYPOTHYROIDISM
     Dosage: 25 MG, 1X/DAY
  2. GENOTROPIN [Suspect]
     Active Substance: SOMATROPIN
     Indication: GROWTH HORMONE DEFICIENCY
     Dosage: 9 MG, WEEKLY
     Dates: start: 20141120

REACTIONS (2)
  - Testicular torsion [Recovered/Resolved]
  - Testicular abscess [Recovered/Resolved]

NARRATIVE: CASE EVENT DATE: 20150809
